FAERS Safety Report 9117924 (Version 2)
Quarter: 2013Q1

REPORT INFORMATION
  Report Type: Spontaneous
  Country: US (occurrence: US)
  Receive Date: 20130225
  Receipt Date: 20130325
  Transmission Date: 20140127
  Serious: Yes (Hospitalization)
  Sender: FDA-Public Use
  Company Number: US-B.I. PHARMACEUTICALS,INC./RIDGEFIELD-2013-BI-04479PF

PATIENT
  Sex: Male
  Weight: 67.13 kg

DRUGS (7)
  1. SPIRIVA [Suspect]
     Indication: CHRONIC OBSTRUCTIVE PULMONARY DISEASE
     Dosage: 18 MCG
     Route: 055
     Dates: start: 200808
  2. LYRICA [Suspect]
     Indication: TRIGEMINAL NEURALGIA
     Dosage: 200 MG
     Dates: start: 20130115
  3. MORPHINE [Suspect]
     Indication: TRIGEMINAL NEURALGIA
     Dates: end: 20130207
  4. IBUPROFEN [Suspect]
     Indication: TRIGEMINAL NEURALGIA
  5. OXYCODONE [Suspect]
     Indication: TRIGEMINAL NEURALGIA
  6. HYDROCODONE [Suspect]
     Indication: TRIGEMINAL NEURALGIA
  7. ADVAIR [Concomitant]
     Indication: CHRONIC OBSTRUCTIVE PULMONARY DISEASE

REACTIONS (9)
  - Aspiration [Unknown]
  - Pneumonia [Recovered/Resolved]
  - Lung disorder [Unknown]
  - Oropharyngeal pain [Unknown]
  - Weight decreased [Unknown]
  - Blood pressure decreased [Recovered/Resolved]
  - Heart rate increased [Recovered/Resolved]
  - Drug ineffective [Unknown]
  - Trigeminal neuralgia [Unknown]
